FAERS Safety Report 21512902 (Version 3)
Quarter: 2024Q3

REPORT INFORMATION
  Report Type: Report from Study
  Country: CN (occurrence: CN)
  Receive Date: 20221027
  Receipt Date: 20240805
  Transmission Date: 20241017
  Serious: Yes (Other)
  Sender: TAKEDA
  Company Number: CN-TAKEDA-2022TUS077289

PATIENT
  Age: 26 Year
  Sex: Female
  Weight: 50 kg

DRUGS (5)
  1. VEDOLIZUMAB [Suspect]
     Active Substance: VEDOLIZUMAB
     Indication: Colitis ulcerative
     Dosage: 300 MILLIGRAM
     Route: 042
     Dates: start: 20220404
  2. Compound glutamine [Concomitant]
     Indication: Inflammatory bowel disease
     Dosage: UNK UNK, TID
     Route: 048
     Dates: start: 20190415
  3. LORATADINE [Concomitant]
     Active Substance: LORATADINE
     Indication: Urticaria
     Dosage: 10 MILLIGRAM, QD
     Route: 048
     Dates: start: 2010
  4. PINAVERIUM BROMIDE [Concomitant]
     Active Substance: PINAVERIUM BROMIDE
     Indication: Inflammatory bowel disease
     Dosage: 50 MILLIGRAM, TID
     Route: 048
     Dates: start: 20220405
  5. LIVE COMBINED BIFIDOBACTERIUM AND LACTOBACILLUS [Concomitant]
     Indication: Inflammatory bowel disease
     Dosage: 2000 MILLIGRAM, TID
     Route: 048
     Dates: start: 2019

REACTIONS (3)
  - Hypokalaemia [Recovered/Resolved]
  - Anaemia [Not Recovered/Not Resolved]
  - Abdominal discomfort [Not Recovered/Not Resolved]

NARRATIVE: CASE EVENT DATE: 20220701
